APPROVED DRUG PRODUCT: CHLOROTHIAZIDE
Active Ingredient: CHLOROTHIAZIDE
Strength: 500MG
Dosage Form/Route: TABLET;ORAL
Application: A086796 | Product #001
Applicant: WATSON LABORATORIES INC
Approved: Aug 15, 1983 | RLD: No | RS: No | Type: DISCN